FAERS Safety Report 9067717 (Version 1)
Quarter: 2013Q1

REPORT INFORMATION
  Report Type: Spontaneous
  Country: US (occurrence: US)
  Receive Date: 20130206
  Receipt Date: 20130206
  Transmission Date: 20140127
  Serious: No
  Sender: FDA-Public Use
  Company Number: US-PFIZER INC-2012331515

PATIENT
  Sex: Female

DRUGS (2)
  1. CENTRUM FLAVOR BURST [Suspect]
     Dosage: UNK
     Route: 048
  2. FLAGYL [Suspect]
     Indication: VAGINITIS BACTERIAL
     Dosage: UNK
     Route: 048

REACTIONS (2)
  - Eye swelling [Recovering/Resolving]
  - Hypersensitivity [Recovering/Resolving]
